FAERS Safety Report 4473644-9 (Version None)
Quarter: 2004Q4

REPORT INFORMATION
  Report Type: 
  Country: None (occurrence: None)
  Receive Date: 20041013
  Receipt Date: 20041006
  Transmission Date: 20050328
  Serious: Yes (Life-Threatening)
  Sender: FDA-Public Use
  Company Number: US-MERCK-0410USA00698

PATIENT
  Age: 66 Year
  Sex: Female

DRUGS (5)
  1. NORVASC [Concomitant]
     Route: 065
  2. CELEXA [Concomitant]
     Route: 065
  3. ALLEGRA [Concomitant]
     Route: 065
  4. METFORMIN [Concomitant]
     Route: 065
  5. VIOXX [Suspect]
     Indication: ARTHRITIS
     Route: 048
     Dates: start: 20000101, end: 20040101

REACTIONS (3)
  - CARDIAC DISORDER [None]
  - DYSPNOEA [None]
  - PARAESTHESIA [None]
